FAERS Safety Report 4750764-2 (Version None)
Quarter: 2005Q3

REPORT INFORMATION
  Report Type: 
  Country: None (occurrence: None)
  Receive Date: 20050823
  Receipt Date: 20050314
  Transmission Date: 20060218
  Serious: Yes (Hospitalization)
  Sender: FDA-Public Use
  Company Number: US-MERCK-0503USA02898

PATIENT
  Age: 57 Year
  Sex: Female
  Weight: 70 kg

DRUGS (7)
  1. VIOXX [Suspect]
     Indication: BACK PAIN
     Route: 048
     Dates: start: 20000101, end: 20010701
  2. COMBIVENT [Concomitant]
     Indication: CHRONIC OBSTRUCTIVE PULMONARY DISEASE
     Route: 065
  3. NORVASC [Concomitant]
     Route: 065
     Dates: start: 19980101
  4. PERCOCET [Concomitant]
     Indication: PAIN MANAGEMENT
     Route: 065
     Dates: start: 19990101
  5. OXYCONTIN [Concomitant]
     Indication: PAIN
     Route: 065
     Dates: start: 19990101
  6. VOLTAREN [Concomitant]
     Indication: PAIN
     Route: 065
     Dates: start: 19990101
  7. ORAMORPH SR [Concomitant]
     Indication: PAIN
     Route: 065
     Dates: start: 20000101

REACTIONS (2)
  - CEREBROVASCULAR ACCIDENT [None]
  - CHEST PAIN [None]
